FAERS Safety Report 6834857-1 (Version None)
Quarter: 2010Q3

REPORT INFORMATION
  Report Type: 
  Country: None (occurrence: None)
  Receive Date: 20100712
  Receipt Date: 20070706
  Transmission Date: 20110219
  Serious: No
  Sender: FDA-Public Use
  Company Number: US-PFIZER INC-2007034184

PATIENT
  Sex: Female

DRUGS (9)
  1. CHANTIX [Suspect]
     Indication: SMOKING CESSATION THERAPY
     Dates: start: 20070220, end: 20070418
  2. SYNTESTAN [Concomitant]
  3. ESTRADIOL [Concomitant]
  4. ADVIL LIQUI-GELS [Concomitant]
     Indication: BACK PAIN
  5. MULTI-VITAMINS [Concomitant]
  6. VITAMIN C [Concomitant]
  7. CALCIUM [Concomitant]
  8. ALL OTHER NON-THERAPEUTIC PRODUCTS [Concomitant]
  9. ALL OTHER THERAPEUTIC PRODUCTS [Concomitant]
     Indication: MULTIPLE SCLEROSIS

REACTIONS (8)
  - ABNORMAL DREAMS [None]
  - DIARRHOEA [None]
  - GINGIVITIS [None]
  - NAUSEA [None]
  - PARAESTHESIA [None]
  - RASH [None]
  - SALIVA DISCOLOURATION [None]
  - SALIVARY HYPERSECRETION [None]
